FAERS Safety Report 5621660-3 (Version None)
Quarter: 2008Q1

REPORT INFORMATION
  Report Type: 
  Country: None (occurrence: None)
  Receive Date: 20080211
  Receipt Date: 20080130
  Transmission Date: 20080703
  Serious: Yes (Other)
  Sender: FDA-Public Use
  Company Number: GB-ASTRAZENECA-2008GB00199

PATIENT
  Age: 81 Year
  Sex: Male

DRUGS (4)
  1. ZOLADEX [Suspect]
     Indication: PROSTATE CANCER
     Route: 058
  2. CASODEX [Suspect]
     Indication: PROSTATE CANCER
     Route: 048
  3. BETA BLOCKER [Concomitant]
  4. ACE INHIBITOR [Concomitant]

REACTIONS (2)
  - ARRHYTHMIA [None]
  - LEUKAEMIA [None]
